FAERS Safety Report 4881948-0 (Version None)
Quarter: 2006Q1

REPORT INFORMATION
  Report Type: 
  Country: None (occurrence: None)
  Receive Date: 20060117
  Receipt Date: 20051212
  Transmission Date: 20060701
  Serious: Yes (Other)
  Sender: FDA-Public Use
  Company Number: 2005-12-0233

PATIENT
  Age: 64 Year
  Sex: Female

DRUGS (6)
  1. WELLBUTRIN [Suspect]
     Indication: DRUG USE FOR UNKNOWN INDICATION
     Route: 048
  2. PEGINTERFERON ALFA-2A [Suspect]
     Indication: HEPATITIS C
     Route: 042
     Dates: start: 20050324
  3. RIBAVIRIN [Suspect]
     Indication: HEPATITIS C
     Route: 048
     Dates: start: 20050324
  4. PROVIGIL [Suspect]
     Indication: DRUG USE FOR UNKNOWN INDICATION
     Route: 065
  5. EFFEXOR XR [Concomitant]
     Route: 048
  6. TOPAMAX [Concomitant]
     Route: 048

REACTIONS (11)
  - ABDOMINAL PAIN UPPER [None]
  - APHASIA [None]
  - ASTHENIA [None]
  - COORDINATION ABNORMAL [None]
  - DIFFICULTY IN WALKING [None]
  - DYSPHEMIA [None]
  - HYPOAESTHESIA [None]
  - LOSS OF CONTROL OF LEGS [None]
  - MENTAL STATUS CHANGES [None]
  - NERVOUSNESS [None]
  - TREMOR [None]
